FAERS Safety Report 23947658 (Version 1)
Quarter: 2024Q2

REPORT INFORMATION
  Report Type: Spontaneous
  Country: FI (occurrence: FI)
  Receive Date: 20240606
  Receipt Date: 20240606
  Transmission Date: 20240716
  Serious: Yes (Disabling)
  Sender: FDA-Public Use
  Company Number: None

PATIENT
  Age: 52 Year
  Sex: Female

DRUGS (2)
  1. OLANZAPINE [Suspect]
     Active Substance: OLANZAPINE
     Indication: Sleep disorder therapy
     Dosage: 5 MG/DAY, OLANZAPINE RATIOPHARM
     Route: 048
     Dates: start: 202310, end: 20240520
  2. Aripiprazole Orion [Concomitant]
     Indication: Bipolar disorder
     Dosage: 10 MG PER DAY
     Route: 048
     Dates: start: 2008

REACTIONS (6)
  - Panic attack [Recovered/Resolved with Sequelae]
  - Arrhythmia [Recovered/Resolved with Sequelae]
  - Resuscitation [Recovered/Resolved with Sequelae]
  - Respiratory depression [Recovered/Resolved with Sequelae]
  - Tremor [Recovered/Resolved with Sequelae]
  - Loss of consciousness [Recovered/Resolved with Sequelae]

NARRATIVE: CASE EVENT DATE: 20231001
